FAERS Safety Report 16360814 (Version 1)
Quarter: 2019Q2

REPORT INFORMATION
  Report Type: Spontaneous
  Country: US (occurrence: US)
  Receive Date: 20190419
  Receipt Date: 20190419
  Transmission Date: 20190711
  Serious: No
  Sender: FDA-Public Use
  Company Number: None

PATIENT
  Sex: Female

DRUGS (2)
  1. GENVOYA [Suspect]
     Active Substance: COBICISTAT\ELVITEGRAVIR\EMTRICITABINE\TENOFOVIR ALAFENAMIDE FUMARATE
     Indication: HIV INFECTION
     Dosage: ?          OTHER DOSE:150/150 MG/MG;?
     Route: 048
     Dates: start: 20180201
  2. ATAZANAVIR 300MG AUROBINDO PHARMA [Suspect]
     Active Substance: ATAZANAVIR
     Indication: HIV INFECTION
     Route: 048
     Dates: start: 20180201

REACTIONS (7)
  - Memory impairment [None]
  - Anxiety [None]
  - Palpitations [None]
  - Alopecia [None]
  - Cough [None]
  - Depression [None]
  - Eating disorder [None]
